FAERS Safety Report 7565793-3 (Version None)
Quarter: 2011Q2

REPORT INFORMATION
  Report Type: 
  Country: None (occurrence: None)
  Receive Date: 20110623
  Receipt Date: 20110616
  Transmission Date: 20111010
  Serious: Yes (Other)
  Sender: FDA-Public Use
  Company Number: US-PFIZER INC-2011133029

PATIENT
  Age: 51 Year
  Sex: Female
  Weight: 60 kg

DRUGS (1)
  1. XALATAN [Suspect]
     Indication: GLAUCOMA
     Dosage: ONE DROP ONE TIME A DAY IN LEFT EYE
     Route: 047
     Dates: start: 20050224

REACTIONS (3)
  - MALAISE [None]
  - FATIGUE [None]
  - PHOTOPHOBIA [None]
